FAERS Safety Report 5109623-8 (Version None)
Quarter: 2006Q3

REPORT INFORMATION
  Report Type: 
  Country: None (occurrence: None)
  Receive Date: 20060918
  Receipt Date: 20060905
  Transmission Date: 20061208
  Serious: Yes (Life-Threatening, Disabling)
  Sender: FDA-Public Use
  Company Number: 2006074345

PATIENT
  Age: 65 Year
  Sex: Female
  Weight: 72 kg

DRUGS (6)
  1. SUTENT [Suspect]
     Indication: METASTATIC RENAL CELL CARCINOMA
     Dosage: 50 MG (50 MG, DAILY, INTERVAL: 28 DAYS ON , 14 DAYS OFF), ORAL
     Route: 048
     Dates: start: 20051220, end: 20060606
  2. LEVOTHYROXINE SODIUM [Concomitant]
  3. ASPIRIN [Concomitant]
  4. AMLODIPINE [Concomitant]
  5. PREDNISONE TAB [Concomitant]
  6. PROPRANOLOL [Concomitant]

REACTIONS (4)
  - ALVEOLITIS [None]
  - COUGH [None]
  - LYMPHANGIOSIS CARCINOMATOSA [None]
  - METASTASES TO LUNG [None]
